FAERS Safety Report 23213796 (Version 1)
Quarter: 2023Q4

REPORT INFORMATION
  Report Type: Spontaneous
  Country: AU (occurrence: AU)
  Receive Date: 20231121
  Receipt Date: 20231121
  Transmission Date: 20240109
  Serious: Yes (Hospitalization)
  Sender: FDA-Public Use
  Company Number: None

PATIENT
  Age: 40 Year
  Sex: Male

DRUGS (25)
  1. PREDNISOLONE [Suspect]
     Active Substance: PREDNISOLONE
     Indication: Pericarditis constrictive
     Dosage: 25 MILLIGRAM; PER DAY; (ADMISSION 3)
     Route: 065
  2. PREDNISOLONE [Suspect]
     Active Substance: PREDNISOLONE
     Indication: Myopericarditis
     Dosage: 50 MILLIGRAM; PER DAY; INCREASED (ADMISSION 4) DAY 43
     Route: 065
  3. PREDNISOLONE [Suspect]
     Active Substance: PREDNISOLONE
     Dosage: 50 MILLIGRAM; PER DAY; INCREASED (ADMISSION 4) DAY 43
     Route: 065
  4. PREDNISOLONE [Suspect]
     Active Substance: PREDNISOLONE
     Dosage: 20 MILLIGRAM; PER DAY
     Route: 065
  5. PREDNISOLONE [Suspect]
     Active Substance: PREDNISOLONE
     Dosage: 50 MILLIGRAM; PER DAY; INCREASED (ADMISSION 4) DAY 43
     Route: 065
  6. COLCHICINE [Suspect]
     Active Substance: COLCHICINE
     Indication: Pericarditis constrictive
     Dosage: 500 MICROGRAM, BID
     Route: 065
  7. COLCHICINE [Suspect]
     Active Substance: COLCHICINE
     Indication: Myopericarditis
     Dosage: 500 MICROGRAM, BID
     Route: 065
  8. COLCHICINE [Suspect]
     Active Substance: COLCHICINE
     Indication: Pericarditis
     Dosage: 500 MICROGRAM, TID
     Route: 065
  9. COLCHICINE [Suspect]
     Active Substance: COLCHICINE
     Dosage: 500 MICROGRAM, TID
     Route: 065
  10. COLCHICINE [Suspect]
     Active Substance: COLCHICINE
     Dosage: 500 MICROGRAM, BID
     Route: 065
  11. COLCHICINE [Suspect]
     Active Substance: COLCHICINE
     Dosage: 500 MICROGRAM, TID
     Route: 065
  12. COLCHICINE [Suspect]
     Active Substance: COLCHICINE
     Dosage: 500 MICROGRAM
     Route: 065
  13. IBUPROFEN [Suspect]
     Active Substance: IBUPROFEN
     Indication: Myopericarditis
     Dosage: 400 MILLIGRAM, TID
     Route: 065
  14. IBUPROFEN [Suspect]
     Active Substance: IBUPROFEN
     Indication: Pericarditis constrictive
     Dosage: 800 MILLIGRAM, TID
     Route: 065
  15. IBUPROFEN [Suspect]
     Active Substance: IBUPROFEN
     Indication: Pain
     Dosage: 400 MILLIGRAM, TID
     Route: 065
  16. IBUPROFEN [Suspect]
     Active Substance: IBUPROFEN
     Dosage: 600 MILLIGRAM, EVERY 8 HOURS, DAY 54
     Route: 065
  17. IBUPROFEN [Suspect]
     Active Substance: IBUPROFEN
     Dosage: 600 MILLIGRAM, TID
     Route: 065
  18. IBUPROFEN [Suspect]
     Active Substance: IBUPROFEN
     Dosage: 600 MILLIGRAM, TID
     Route: 065
  19. PANTOPRAZOLE [Concomitant]
     Active Substance: PANTOPRAZOLE
     Indication: Pericarditis constrictive
     Dosage: 40 MILLIGRAM; PER DAY
     Route: 065
  20. PANTOPRAZOLE [Concomitant]
     Active Substance: PANTOPRAZOLE
     Indication: Myopericarditis
  21. SULFAMETHOXAZOLE AND TRIMETHOPRIM [Concomitant]
     Active Substance: SULFAMETHOXAZOLE\TRIMETHOPRIM
     Indication: Pericarditis constrictive
     Dosage: UNK, THRICE  A WEEK; THREE TIMES WEEKLY; COMPRISES TRIMETHOPRIM-SULFAMETHOXAZOLE 160-800 MG, ADMINIS
     Route: 065
  22. SULFAMETHOXAZOLE AND TRIMETHOPRIM [Concomitant]
     Active Substance: SULFAMETHOXAZOLE\TRIMETHOPRIM
     Indication: Myopericarditis
  23. OXYCODONE [Concomitant]
     Active Substance: OXYCODONE
     Indication: Pain
     Dosage: UNK
     Route: 065
  24. FENTANYL [Concomitant]
     Active Substance: FENTANYL\FENTANYL CITRATE
     Indication: Pain
     Dosage: UNK
     Route: 065
  25. TOZINAMERAN [Concomitant]
     Active Substance: TOZINAMERAN
     Indication: COVID-19 immunisation
     Dosage: UNK, SINGLE
     Route: 065

REACTIONS (4)
  - Weight increased [Unknown]
  - Insomnia [Unknown]
  - Mood altered [Unknown]
  - Off label use [Unknown]
